FAERS Safety Report 10932081 (Version 1)
Quarter: 2015Q1

REPORT INFORMATION
  Report Type: Spontaneous
  Country: US (occurrence: None)
  Receive Date: 20150128
  Receipt Date: 20150128
  Transmission Date: 20150721
  Serious: Yes (Hospitalization, Other)
  Sender: FDA-Public Use
  Company Number: 2014TUS012292

PATIENT
  Age: 22 Year
  Sex: Male

DRUGS (2)
  1. ZYPREXA [Concomitant]
     Active Substance: OLANZAPINE
  2. BRINTELLIX [Suspect]
     Active Substance: VORTIOXETINE HYDROBROMIDE
     Indication: DEPRESSION
     Dosage: 1 TABLET, QD, ORAL
     Route: 048
     Dates: start: 201403

REACTIONS (1)
  - Serotonin syndrome [None]

NARRATIVE: CASE EVENT DATE: 20141120
